FAERS Safety Report 5742236-3 (Version None)
Quarter: 2008Q2

REPORT INFORMATION
  Report Type: 
  Country: None (occurrence: None)
  Receive Date: 20080514
  Receipt Date: 20080514
  Transmission Date: 20081010
  Serious: No
  Sender: FDA-Public Use
  Company Number: None

PATIENT
  Sex: Female

DRUGS (1)
  1. LISINOPRIL [Suspect]
     Dosage: 20MG  -1/2 TABLET-  QD  PO
     Route: 048
     Dates: start: 20080512, end: 20080512

REACTIONS (3)
  - DRY MOUTH [None]
  - HYPOAESTHESIA [None]
  - PARAESTHESIA [None]
